FAERS Safety Report 17174164 (Version 1)
Quarter: 2019Q4

REPORT INFORMATION
  Report Type: Spontaneous
  Country: US (occurrence: US)
  Receive Date: 20191126
  Receipt Date: 20191126
  Transmission Date: 20200122
  Serious: No
  Sender: FDA-Public Use
  Company Number: None

PATIENT
  Age: 68 Year
  Sex: Female
  Weight: 70.31 kg

DRUGS (5)
  1. FOLIC ACID. [Concomitant]
     Active Substance: FOLIC ACID
  2. VITAMIN B12 [Concomitant]
     Active Substance: CYANOCOBALAMIN
  3. MAGIC MOUTHWASH T/A MAJOR (VISCOUS LIDOCAINE/DIPHENHYDRAMINE/NYSTATIN/PREDNISOLONE) [Suspect]
     Active Substance: DIPHENHYDRAMINE\LIDOCAINE\NYSTATIN\PREDNISOLONE
     Indication: CANDIDA INFECTION
     Dosage: ?          OTHER FREQUENCY:TOOK IT TWICE ;OTHER ROUTE:SWISHING BY MOUTH?
     Dates: start: 20171219, end: 20171220
  4. VITAMIN D3 [Concomitant]
     Active Substance: CHOLECALCIFEROL
  5. FLUOCINONIDE. [Concomitant]
     Active Substance: FLUOCINONIDE

REACTIONS (7)
  - Product dispensing error [None]
  - Weight decreased [None]
  - Near death experience [None]
  - Anosmia [None]
  - Skin disorder [None]
  - Ageusia [None]
  - Hypophagia [None]

NARRATIVE: CASE EVENT DATE: 20171219
